FAERS Safety Report 16895618 (Version 3)
Quarter: 2020Q2

REPORT INFORMATION
  Report Type: Report from Study
  Country: US (occurrence: US)
  Receive Date: 20191008
  Receipt Date: 20200416
  Transmission Date: 20200713
  Serious: Yes (Hospitalization, Other)
  Sender: FDA-Public Use
  Company Number: US-ACTELION-A-US2019-196460

PATIENT
  Sex: Female
  Weight: 60.32 kg

DRUGS (2)
  1. OPSUMIT [Suspect]
     Active Substance: MACITENTAN
     Indication: PULMONARY HYPERTENSION
     Dosage: 10 MG
     Route: 048
  2. ADCIRCA [Concomitant]
     Active Substance: TADALAFIL

REACTIONS (8)
  - Pneumonia [Unknown]
  - Raynaud^s phenomenon [Unknown]
  - Dialysis device insertion [Unknown]
  - Surgery [Unknown]
  - Bronchitis [Unknown]
  - Peritonitis [Unknown]
  - Limb operation [Unknown]
  - Dialysis [Unknown]
